FAERS Safety Report 6404367-4 (Version None)
Quarter: 2009Q4

REPORT INFORMATION
  Report Type: 
  Country: None (occurrence: None)
  Receive Date: 20091016
  Receipt Date: 20091006
  Transmission Date: 20100525
  Serious: Yes (Hospitalization)
  Sender: FDA-Public Use
  Company Number: JP-ABBOTT-09P-087-0601320-00

PATIENT
  Sex: Male

DRUGS (10)
  1. LEUPRORELIN DEPOT [Suspect]
     Indication: SPINAL MUSCULAR ATROPHY
     Route: 058
     Dates: start: 20070216
  2. LEUPRORELIN DEPOT [Suspect]
  3. MOHRUS TAPE [Concomitant]
     Indication: ARTHRALGIA
     Route: 062
     Dates: start: 20020101
  4. MOHRUS TAPE [Concomitant]
  5. MOHRUS PAP [Concomitant]
     Indication: ARTHRALGIA
     Route: 062
     Dates: start: 20020101
  6. MOHRUS PAP [Concomitant]
  7. HOCHUUEKKITOU [Concomitant]
     Indication: SPINAL MUSCULAR ATROPHY
     Route: 048
     Dates: start: 20080718
  8. PURSENNID [Concomitant]
     Indication: CONSTIPATION
     Route: 048
     Dates: start: 20090909
  9. LAXOBERON [Concomitant]
     Indication: CONSTIPATION
     Route: 048
     Dates: start: 20090909
  10. MYSLEE [Concomitant]
     Indication: INSOMNIA
     Route: 048
     Dates: start: 20090909

REACTIONS (1)
  - TIBIA FRACTURE [None]
